FAERS Safety Report 6924320-1 (Version None)
Quarter: 2010Q3

REPORT INFORMATION
  Report Type: 
  Country: None (occurrence: None)
  Receive Date: 20100811
  Receipt Date: 20100811
  Transmission Date: 20110219
  Serious: Yes (Other)
  Sender: FDA-Public Use
  Company Number: None

PATIENT
  Age: 51 Year
  Sex: Female
  Weight: 77.1115 kg

DRUGS (4)
  1. ABILIFY [Suspect]
     Indication: AFFECTIVE DISORDER
     Dosage: 15 1 PER DAY PO
     Route: 048
     Dates: start: 20081120, end: 20091016
  2. ABILIFY [Suspect]
     Indication: DEPRESSION
     Dosage: 15 1 PER DAY PO
     Route: 048
     Dates: start: 20081120, end: 20091016
  3. WELLBUTRIN [Concomitant]
  4. ACIPHEX [Concomitant]

REACTIONS (1)
  - GLUCOSE TOLERANCE IMPAIRED [None]
